FAERS Safety Report 7510485-X (Version None)
Quarter: 2011Q2

REPORT INFORMATION
  Report Type: 
  Country: None (occurrence: None)
  Receive Date: 20110528
  Receipt Date: 20110517
  Transmission Date: 20111010
  Serious: Yes (Death, Other)
  Sender: FDA-Public Use
  Company Number: GB-GENZYME-CLOF-1001613

PATIENT
  Sex: Male

DRUGS (14)
  1. EVOLTRA [Suspect]
     Dosage: UNK
     Route: 065
     Dates: start: 20110429, end: 20110502
  2. LANSOPRAZOLE [Concomitant]
     Indication: PRODUCT USED FOR UNKNOWN INDICATION
     Dosage: 15 MG, QD
     Route: 065
     Dates: start: 20110428, end: 20110511
  3. ACETAMINOPHEN [Concomitant]
     Indication: PRODUCT USED FOR UNKNOWN INDICATION
     Dosage: 1 G, UNK
     Route: 065
     Dates: start: 20110508, end: 20110510
  4. MYLOTARG [Suspect]
     Dosage: 3 MG/M2, UNK
     Route: 065
     Dates: start: 20110429, end: 20110502
  5. ITRACONAZOLE [Concomitant]
     Indication: PRODUCT USED FOR UNKNOWN INDICATION
     Dosage: 200 MG, BID
     Route: 065
     Dates: start: 20110428, end: 20110513
  6. ZOPICLONE [Concomitant]
     Indication: PRODUCT USED FOR UNKNOWN INDICATION
     Dosage: 3.75 MG, QD
     Route: 065
     Dates: start: 20110428, end: 20110512
  7. MYLOTARG [Suspect]
     Indication: ACUTE MYELOID LEUKAEMIA
     Dosage: UNK, COURSE 1
     Route: 065
     Dates: start: 20110429, end: 20110502
  8. DOXORUBICIN HCL [Suspect]
     Dosage: UNK
     Route: 065
     Dates: start: 20110429, end: 20110502
  9. LOPERAMIDE [Concomitant]
     Indication: PRODUCT USED FOR UNKNOWN INDICATION
     Dosage: 2 MG, QD
     Route: 065
     Dates: start: 20110508, end: 20110511
  10. CYTARABINE [Suspect]
     Dosage: UNK
     Route: 065
     Dates: start: 20110429, end: 20110502
  11. CYCLIZINE [Concomitant]
     Indication: PRODUCT USED FOR UNKNOWN INDICATION
     Dosage: 50 MG, TID
     Route: 065
     Dates: start: 20110504, end: 20110514
  12. EVOLTRA [Suspect]
     Indication: ACUTE MYELOID LEUKAEMIA
     Dosage: UNK, COURSE 1
     Route: 065
     Dates: start: 20110429, end: 20110502
  13. CYTARABINE [Suspect]
     Indication: ACUTE MYELOID LEUKAEMIA
     Dosage: UNK, COURSE 1
     Route: 065
     Dates: start: 20110429, end: 20110502
  14. DOXORUBICIN HCL [Suspect]
     Indication: ACUTE MYELOID LEUKAEMIA
     Dosage: UNK, COURSE 1
     Route: 065
     Dates: start: 20110429, end: 20110502

REACTIONS (5)
  - RENAL FAILURE [None]
  - LOWER RESPIRATORY TRACT INFECTION [None]
  - NEUTROPENIC SEPSIS [None]
  - BACTERIAL SEPSIS [None]
  - ATRIAL FIBRILLATION [None]
